FAERS Safety Report 8881178 (Version 1)
Quarter: 2012Q4

REPORT INFORMATION
  Report Type: 
  Country: BR (occurrence: BR)
  Receive Date: 20121031
  Receipt Date: 20121031
  Transmission Date: 20130627
  Serious: Yes (Other)
  Sender: FDA-Public Use
  Company Number: PHHY2012BR098521

PATIENT
  Age: 70 Year
  Sex: Female
  Weight: 53 kg

DRUGS (3)
  1. DIOVAN AMLO FIX [Suspect]
     Indication: HYPERTENSION
     Dosage: 1 DF, daily
     Route: 048
     Dates: start: 20120927
  2. DIOVAN AMLO FIX [Suspect]
     Dosage: 0.5 DF, daily
     Route: 048
     Dates: start: 20121030
  3. RIVOTRIL [Concomitant]
     Indication: SLEEP DISORDER
     Dosage: 0.5 DF, daily
     Route: 048

REACTIONS (6)
  - Blood pressure decreased [Recovered/Resolved]
  - Decreased appetite [Recovered/Resolved]
  - Asthenia [Recovered/Resolved]
  - Dizziness [Recovered/Resolved]
  - Pollakiuria [Recovered/Resolved]
  - Wrong technique in drug usage process [Recovered/Resolved]
